FAERS Safety Report 16853426 (Version 2)
Quarter: 2021Q3

REPORT INFORMATION
  Report Type: Spontaneous
  Country: JP (occurrence: JP)
  Receive Date: 20190925
  Receipt Date: 20210825
  Transmission Date: 20211014
  Serious: Yes (Death, Other)
  Sender: FDA-Public Use
  Company Number: JP-INCYTE CORPORATION-2019IN009560

PATIENT

DRUGS (3)
  1. JAKAVI [Suspect]
     Active Substance: RUXOLITINIB
     Dosage: 10 MG, UNK
     Route: 048
     Dates: end: 201810
  2. JAKAVI [Suspect]
     Active Substance: RUXOLITINIB
     Dosage: 25 MG, UNK
     Route: 048
  3. JAKAVI [Suspect]
     Active Substance: RUXOLITINIB
     Indication: PRIMARY MYELOFIBROSIS
     Dosage: 10 MG, UNK
     Route: 048
     Dates: start: 201503

REACTIONS (20)
  - Pleural effusion [Fatal]
  - Iron overload [Fatal]
  - Productive cough [Unknown]
  - Leukopenia [Unknown]
  - Neutropenia [Unknown]
  - Serratia infection [Unknown]
  - Concomitant disease aggravated [Fatal]
  - Cardiac failure chronic [Fatal]
  - Blood creatinine abnormal [Unknown]
  - Alanine aminotransferase abnormal [Unknown]
  - Primary myelofibrosis [Unknown]
  - Anaemia [Unknown]
  - Aspergillus infection [Unknown]
  - Bronchitis [Fatal]
  - Respiratory acidosis [Fatal]
  - Candida infection [Unknown]
  - Dyspnoea [Unknown]
  - Oedema [Unknown]
  - Lymphopenia [Unknown]
  - Platelet count decreased [Unknown]

NARRATIVE: CASE EVENT DATE: 201810
